FAERS Safety Report 9364173 (Version 2)
Quarter: 2013Q3

REPORT INFORMATION
  Report Type: Spontaneous
  Country: GB (occurrence: GB)
  Receive Date: 20130624
  Receipt Date: 20130814
  Transmission Date: 20140515
  Serious: Yes (Disabling)
  Sender: FDA-Public Use
  Company Number: GB-PFIZER INC-2013183454

PATIENT
  Sex: Female

DRUGS (3)
  1. PREGABALIN [Suspect]
     Indication: ANALGESIC THERAPY
     Dosage: 200 MG, 3X/DAY
     Route: 048
  2. SOLPADOL [Suspect]
     Indication: SPINAL DISORDER
     Dosage: 100 MG, 3X/DAY
     Route: 048
  3. BUPRENORPHINE [Suspect]
     Dosage: UNK
     Dates: start: 20130507

REACTIONS (4)
  - Immobile [Unknown]
  - Dry mouth [Unknown]
  - Swollen tongue [Unknown]
  - Dizziness [Unknown]
